FAERS Safety Report 19513802 (Version 4)
Quarter: 2024Q1

REPORT INFORMATION
  Report Type: Spontaneous
  Country: AT (occurrence: AT)
  Receive Date: 20210709
  Receipt Date: 20240226
  Transmission Date: 20240409
  Serious: Yes (Hospitalization)
  Sender: FDA-Public Use
  Company Number: AT-NOVARTISPH-NVSC2021AT146135

PATIENT
  Age: 62 Year
  Sex: Female
  Weight: 80 kg

DRUGS (79)
  1. VINORELBINE [Suspect]
     Active Substance: VINORELBINE TARTRATE
     Indication: HER2 positive breast cancer
     Dosage: UNK (RECEIVED DOSE ON 30/MAY/2017, MOST RECENT DOSE PRIOR TO THE EVENT: 27/JUN/2017)
     Route: 048
     Dates: start: 20170306
  2. VINORELBINE [Suspect]
     Active Substance: VINORELBINE TARTRATE
     Dosage: 50 MG, OTHER (RECEIVED DOSE ON 30 MAY 2017, MOST RECENT DOSE PRIOR TO THE EVENT: 27 JUN 2017))
     Route: 048
     Dates: start: 20170306, end: 20170530
  3. VINORELBINE [Suspect]
     Active Substance: VINORELBINE TARTRATE
     Dosage: 50 MG (0.33 UNITS IN THE INTERVAL)
     Route: 048
     Dates: start: 20170627, end: 20170718
  4. VINORELBINE [Suspect]
     Active Substance: VINORELBINE TARTRATE
     Dosage: 50 MG (0.33 UNITS IN THE INTERVAL)
     Route: 048
     Dates: start: 20170306, end: 20170530
  5. VINORELBINE [Suspect]
     Active Substance: VINORELBINE TARTRATE
     Dosage: UNK (RECEIVED DOSE ON 30/MAY/2017, MOST RECENT DOSE PRIOR TO THE EVENT: 27/JUN/2017)
     Route: 048
     Dates: start: 20170306
  6. LAPATINIB [Suspect]
     Active Substance: LAPATINIB
     Indication: HER2 positive breast cancer
     Dosage: 3500 MG, QD (3500 MG (RECEIVED DOSE ON 10/SEP/2018, MOST RECENT DOSE PRIOR TO THE EVENT: 20190527)
     Route: 048
     Dates: start: 20180904, end: 20180910
  7. LAPATINIB [Suspect]
     Active Substance: LAPATINIB
     Dosage: 1000 MG, QD (750 MG, QD)
     Route: 048
     Dates: start: 20181227
  8. LAPATINIB [Suspect]
     Active Substance: LAPATINIB
     Dosage: 1000 MG 0.5 MG PER DAY
     Route: 048
     Dates: start: 20190527, end: 201906
  9. LAPATINIB [Suspect]
     Active Substance: LAPATINIB
     Dosage: 1000 MG, 0.5 MG PER DAY
     Route: 048
     Dates: start: 20190617, end: 201909
  10. LAPATINIB [Suspect]
     Active Substance: LAPATINIB
     Dosage: 750 MG, QD
     Route: 048
     Dates: start: 20190116, end: 20190206
  11. CAPECITABINE [Suspect]
     Active Substance: CAPECITABINE
     Indication: HER2 positive breast cancer
     Dosage: 3500 MG, QD
     Route: 048
     Dates: start: 20180904, end: 20180910
  12. CAPECITABINE [Suspect]
     Active Substance: CAPECITABINE
     Dosage: 1000 MG, 0.5 MG PER DAY
     Route: 048
     Dates: start: 20190617, end: 201909
  13. CAPECITABINE [Suspect]
     Active Substance: CAPECITABINE
     Dosage: 1000 MG, 0.5 MG PER DAY
     Route: 048
     Dates: start: 20190527, end: 201906
  14. PERTUZUMAB [Suspect]
     Active Substance: PERTUZUMAB
     Indication: HER2 positive breast cancer
     Dosage: 420 MG, Q3W (420 MG EVERY 3 WEEKS; MOST RECENT DOSE ON 21/NOV/2017)
     Route: 042
     Dates: start: 20170306
  15. NAVELBINE [Suspect]
     Active Substance: VINORELBINE TARTRATE
     Indication: HER2 positive breast cancer
     Dosage: 50 MG (50 MG, FREQUENCY: OTHER, RECEIVED DOSE ON 30/MAY/2017, MOST RECENT DOSE PRIOR TO THE EVENT: 2
     Route: 048
     Dates: start: 20170306
  16. XELODA [Suspect]
     Active Substance: CAPECITABINE
     Indication: HER2 positive breast cancer
     Dosage: 3500 MG, QD (3500 MG, DAILY, RECEIVED DOSE ON 10/SEP/2018, MOST RECENT DOSE PRIOR TO THE EVENT: 2019
     Route: 048
     Dates: start: 20180904
  17. ADO-TRASTUZUMAB EMTANSINE [Suspect]
     Active Substance: ADO-TRASTUZUMAB EMTANSINE
     Indication: HER2 positive breast cancer
     Dosage: 3.6 MG/M2, Q3W
     Route: 042
     Dates: start: 20171212, end: 20180424
  18. ADO-TRASTUZUMAB EMTANSINE [Suspect]
     Active Substance: ADO-TRASTUZUMAB EMTANSINE
     Dosage: 3.6 MG/M2, Q3W (INTRAVENOUS)
     Route: 042
     Dates: start: 20171212
  19. ADO-TRASTUZUMAB EMTANSINE [Suspect]
     Active Substance: ADO-TRASTUZUMAB EMTANSINE
     Dosage: 3.3 MG/M2, Q3W
     Route: 042
     Dates: start: 20180515, end: 20180813
  20. TRASTUZUMAB [Suspect]
     Active Substance: TRASTUZUMAB
     Indication: HER2 positive breast cancer
     Dosage: 480 MG (RECEIVED DOSE ON 21/NOV/2017, MOST RECENT DOSE PRIOR TO THE EVENT: 07/MAY/2019, 27/MAY/2019,
     Route: 042
     Dates: start: 20170306
  21. HERCEPTIN [Suspect]
     Active Substance: TRASTUZUMAB
     Indication: HER2 positive breast cancer
     Dosage: 480 MG (MOST RECENT DOSE PRIOR TO THE EVENT: 22/MAR/2019)
     Route: 042
     Dates: start: 20170306, end: 20171121
  22. VENLAFAXINE HYDROCHLORIDE [Concomitant]
     Active Substance: VENLAFAXINE HYDROCHLORIDE
     Indication: Product used for unknown indication
     Dosage: UNK (UNK)
     Route: 065
     Dates: start: 20190315, end: 20190907
  23. HYDROMORPHONE HYDROCHLORIDE [Concomitant]
     Active Substance: HYDROMORPHONE HYDROCHLORIDE
     Indication: Back pain
     Dosage: UNK (UNK)
     Route: 065
     Dates: start: 20180403, end: 20180628
  24. HYDROMORPHONE HYDROCHLORIDE [Concomitant]
     Active Substance: HYDROMORPHONE HYDROCHLORIDE
     Indication: Back pain
     Dosage: UNK (UNK)
     Route: 065
     Dates: start: 20180628, end: 20190226
  25. HYDROMORPHONE HYDROCHLORIDE [Concomitant]
     Active Substance: HYDROMORPHONE HYDROCHLORIDE
     Dosage: UNK
     Route: 065
     Dates: start: 20181227, end: 20190907
  26. HYDROMORPHONE HYDROCHLORIDE [Concomitant]
     Active Substance: HYDROMORPHONE HYDROCHLORIDE
     Dosage: UNK (ONGOING = NOT CHECKED)
     Route: 065
     Dates: start: 20181227, end: 20190907
  27. DAFLON [Concomitant]
     Indication: Product used for unknown indication
     Dosage: UNK
     Route: 065
  28. DAFLON [Concomitant]
     Dosage: UNK (ONGOING = CHECKED)
     Route: 065
  29. DAFLON [Concomitant]
     Dosage: UNK (UNK)
     Route: 065
     Dates: end: 20190907
  30. DAFLON [Concomitant]
     Dosage: UNK (ONGOING = NOT CHECKED)
     Route: 065
     Dates: start: 20171212, end: 20190907
  31. DEXAMETHASONE [Concomitant]
     Active Substance: DEXAMETHASONE
     Indication: Product used for unknown indication
     Dosage: UNK
     Route: 065
     Dates: start: 20170829, end: 20180813
  32. DEXAMETHASONE [Concomitant]
     Active Substance: DEXAMETHASONE
     Dosage: UNK
     Route: 065
     Dates: start: 20180127, end: 20180313
  33. DEXAMETHASONE [Concomitant]
     Active Substance: DEXAMETHASONE
     Dosage: UNK (ONGOING = NOT CHECKED)
     Route: 065
     Dates: start: 20190215, end: 20190907
  34. DEXAMETHASONE [Concomitant]
     Active Substance: DEXAMETHASONE
     Dosage: UNK
     Route: 065
     Dates: start: 20190215
  35. TEMESTA [Concomitant]
     Indication: Product used for unknown indication
     Dosage: UNK (ONGOING = CHECKED)
     Route: 065
     Dates: start: 20190226
  36. TEMESTA [Concomitant]
     Dosage: UNK (UNK)
     Route: 065
     Dates: start: 20190226
  37. DIMETHINDENE [Concomitant]
     Active Substance: DIMETHINDENE
     Indication: Chills
     Dosage: UNK (UNK)
     Route: 065
     Dates: start: 20170306, end: 20170306
  38. DIMETHINDENE [Concomitant]
     Active Substance: DIMETHINDENE
     Dosage: UNK (UNK)
     Route: 065
     Dates: start: 20170327, end: 20180313
  39. MIRTAZAPINE [Concomitant]
     Active Substance: MIRTAZAPINE
     Indication: Product used for unknown indication
     Dosage: UNK (ONGOING = CHECKED)
     Route: 065
     Dates: start: 20190315, end: 20190907
  40. MIRTAZAPINE [Concomitant]
     Active Substance: MIRTAZAPINE
     Dosage: UNK (ONGOING = NOT CHECKED)
     Route: 065
     Dates: start: 20190315
  41. PANTOPRAZOLE SODIUM [Concomitant]
     Active Substance: PANTOPRAZOLE SODIUM
     Indication: Product used for unknown indication
     Dosage: UNK (ONGOING = CHECKED)
     Route: 065
     Dates: start: 20170302
  42. PANTOPRAZOLE SODIUM [Concomitant]
     Active Substance: PANTOPRAZOLE SODIUM
     Dosage: UNK (UNK)
     Route: 065
     Dates: start: 20170302
  43. AMOXICILLIN [Concomitant]
     Active Substance: AMOXICILLIN
     Indication: Vascular device infection
     Dosage: UNK
     Route: 065
     Dates: start: 20180215, end: 20180215
  44. EDOXABAN TOSYLATE [Concomitant]
     Active Substance: EDOXABAN TOSYLATE
     Indication: Pulmonary embolism
     Dosage: UNK (ONGOING = NOT CHECKED)
     Route: 065
     Dates: start: 20190315, end: 20190907
  45. EDOXABAN TOSYLATE [Concomitant]
     Active Substance: EDOXABAN TOSYLATE
     Indication: Pulmonary embolism
  46. TRAZODONE HYDROCHLORIDE [Concomitant]
     Active Substance: TRAZODONE HYDROCHLORIDE
     Indication: Product used for unknown indication
     Dosage: UNK
     Route: 065
  47. ACETAMINOPHEN [Concomitant]
     Active Substance: ACETAMINOPHEN
     Indication: Product used for unknown indication
     Dosage: UNK (UNK)
     Route: 065
     Dates: start: 20170327, end: 20170327
  48. LASIX [Concomitant]
     Active Substance: FUROSEMIDE
     Indication: Product used for unknown indication
     Dosage: UNK (ONGOING = CHECKED)
     Route: 065
  49. LASIX [Concomitant]
     Active Substance: FUROSEMIDE
     Dosage: UNK
     Route: 065
     Dates: end: 20190907
  50. LASIX [Concomitant]
     Active Substance: FUROSEMIDE
     Dosage: UNK (ONGOING = CHECKED)
     Route: 065
     Dates: end: 20190907
  51. LASIX [Concomitant]
     Active Substance: FUROSEMIDE
     Dosage: UNK (ONGOING = NOT CHECKED )
     Route: 065
     Dates: end: 20190907
  52. LOVENOX [Concomitant]
     Active Substance: ENOXAPARIN SODIUM
     Indication: Product used for unknown indication
     Dosage: UNK
     Route: 065
     Dates: start: 20180126, end: 20180208
  53. LOVENOX [Concomitant]
     Active Substance: ENOXAPARIN SODIUM
     Dosage: UNK (UNK)
     Route: 065
     Dates: start: 20190312, end: 20190315
  54. BAMBUTEROL HYDROCHLORIDE [Concomitant]
     Active Substance: BAMBUTEROL HYDROCHLORIDE
     Indication: Product used for unknown indication
     Dosage: UNK
     Route: 065
  55. PASPERTIN [Concomitant]
     Indication: Product used for unknown indication
     Dosage: UNK (ONGOING = NOT CHECKED)
     Route: 065
     Dates: start: 20171212, end: 20190907
  56. PASPERTIN [Concomitant]
     Dosage: UNK (UNK)
     Route: 065
     Dates: start: 20171212, end: 20190907
  57. LACTULOSE [Concomitant]
     Active Substance: LACTULOSE
     Indication: Product used for unknown indication
     Dosage: UNK
     Route: 065
     Dates: start: 20171212, end: 20190907
  58. PARACODIN [Concomitant]
     Indication: Cough
     Dosage: UNK
     Route: 065
     Dates: start: 20171212, end: 20180115
  59. PARACODIN [Concomitant]
     Dosage: UNK
     Route: 065
     Dates: start: 20190510
  60. ZOLPIDEM [Concomitant]
     Active Substance: ZOLPIDEM TARTRATE
     Indication: Product used for unknown indication
     Dosage: UNK
     Route: 065
     Dates: start: 20190215, end: 20190315
  61. EMEND [Concomitant]
     Active Substance: APREPITANT
     Indication: Product used for unknown indication
     Dosage: UNK (UNK)
     Route: 065
     Dates: start: 20180127, end: 20180815
  62. AMOXICILLIN\CLAVULANATE POTASSIUM [Concomitant]
     Active Substance: AMOXICILLIN\CLAVULANATE POTASSIUM
     Indication: Vascular device infection
     Dosage: UNK
     Route: 065
     Dates: start: 20180215, end: 20180215
  63. AMOXICILLIN\CLAVULANATE POTASSIUM [Concomitant]
     Active Substance: AMOXICILLIN\CLAVULANATE POTASSIUM
     Indication: Vascular device infection
  64. BISOPROLOL FUMARATE [Concomitant]
     Active Substance: BISOPROLOL FUMARATE
     Indication: Product used for unknown indication
     Dosage: UNK (ONGOING = CHECKED)
     Route: 065
     Dates: end: 20190907
  65. DEXAMETHASONE [Concomitant]
     Active Substance: DEXAMETHASONE
     Indication: Product used for unknown indication
     Dosage: UNK (UNK)
     Route: 065
     Dates: start: 20170829, end: 20180813
  66. KALIORAL [Concomitant]
     Indication: Product used for unknown indication
     Dosage: UNK
     Route: 065
  67. LYRICA [Concomitant]
     Active Substance: PREGABALIN
     Indication: Back pain
     Dosage: UNK (ONGOING = CHECKED)
     Route: 065
  68. LYRICA [Concomitant]
     Active Substance: PREGABALIN
     Indication: Back pain
     Dosage: UNK
     Route: 065
     Dates: start: 20181227, end: 20190226
  69. RANITIDINE HYDROCHLORIDE [Concomitant]
     Active Substance: RANITIDINE HYDROCHLORIDE
     Indication: Chills
     Dosage: UNK (UNK)
     Route: 065
     Dates: start: 20170306, end: 20170306
  70. RANITIDINE HYDROCHLORIDE [Concomitant]
     Active Substance: RANITIDINE HYDROCHLORIDE
     Dosage: UNK
     Route: 065
     Dates: start: 20170327, end: 20180813
  71. PREDNISOLONE SODIUM SUCCINATE [Concomitant]
     Active Substance: PREDNISOLONE SODIUM SUCCINATE
     Indication: Chills
     Dosage: UNK
     Route: 065
     Dates: start: 20170306, end: 20170306
  72. SUCRALFATE [Concomitant]
     Active Substance: SUCRALFATE
     Indication: Product used for unknown indication
     Dosage: UNK ONGOING =NOT CHECKED
     Route: 065
     Dates: end: 20190907
  73. SUCRALFATE [Concomitant]
     Active Substance: SUCRALFATE
     Dosage: UNK (ONGOING = CHECKED)
     Route: 065
     Dates: end: 20190907
  74. SUCRALFATE [Concomitant]
     Active Substance: SUCRALFATE
     Dosage: UNK (ONGOING = CHECKED)
     Route: 065
     Dates: end: 20190907
  75. SUCRALFATE [Concomitant]
     Active Substance: SUCRALFATE
     Dosage: UNK (UNK)
     Route: 065
     Dates: end: 20190907
  76. ZYRTEC [Concomitant]
     Active Substance: CETIRIZINE HYDROCHLORIDE
     Indication: Pruritus
     Dosage: UNK
     Route: 065
     Dates: start: 20170327, end: 20171215
  77. ZYRTEC [Concomitant]
     Active Substance: CETIRIZINE HYDROCHLORIDE
     Indication: Pruritus
  78. KYTRIL [Concomitant]
     Active Substance: GRANISETRON HYDROCHLORIDE
     Indication: Product used for unknown indication
     Dosage: UNK
     Route: 065
     Dates: start: 20171212, end: 20180813
  79. BUPRENORPHINE [Concomitant]
     Active Substance: BUPRENORPHINE
     Indication: Product used for unknown indication
     Dosage: UNK
     Route: 065

REACTIONS (3)
  - Respiratory tract infection [Recovered/Resolved]
  - Cough [Not Recovered/Not Resolved]
  - Dyspnoea [Not Recovered/Not Resolved]

NARRATIVE: CASE EVENT DATE: 20190415
